FAERS Safety Report 6215563-3 (Version None)
Quarter: 2009Q2

REPORT INFORMATION
  Report Type: 
  Country: None (occurrence: None)
  Receive Date: 20090605
  Receipt Date: 20090527
  Transmission Date: 20091009
  Serious: Yes (Hospitalization)
  Sender: FDA-Public Use
  Company Number: DE-RANBAXY-2009RR-24586

PATIENT
  Age: 94 Year
  Sex: Male

DRUGS (11)
  1. GABAPENTIN [Suspect]
     Indication: PARTIAL SEIZURES
     Dosage: UNK
     Route: 048
     Dates: start: 20061001
  2. ZOLPIDEM TARTRATE [Suspect]
     Indication: SLEEP DISORDER
     Route: 048
  3. FENTANYL HEXAL [Suspect]
     Indication: PAIN
     Dosage: 12.5 UNK, UNK
     Route: 062
     Dates: start: 20090101
  4. MELNEURIN [Suspect]
     Indication: DEMENTIA OF THE ALZHEIMER'S TYPE, WITH DEPRESSED MOOD
     Dosage: 50 MG, UNK
     Route: 048
     Dates: start: 20090513
  5. MELNEURIN [Suspect]
     Dosage: UNK
  6. CITALOPRAM HYDROBROMIDE [Concomitant]
     Indication: DEPRESSION
     Dosage: UNK
     Route: 048
     Dates: start: 20090101
  7. INSULIN ACTRAPID ^NOVO NORDISK^ [Concomitant]
     Indication: TYPE 2 DIABETES MELLITUS
     Dosage: UNK
     Route: 058
     Dates: start: 19950101
  8. INSULIN PROTAPHAN HUMAN [Concomitant]
     Indication: TYPE 2 DIABETES MELLITUS
     Dosage: UNK
     Route: 058
     Dates: start: 19950101
  9. LACTULOSE [Concomitant]
     Indication: CONSTIPATION
     Route: 048
  10. OMEPRAZOLE [Concomitant]
     Indication: PROPHYLAXIS AGAINST GASTROINTESTINAL ULCER
     Route: 048
  11. TORSEMIDE [Concomitant]
     Indication: DIABETIC NEPHROPATHY
     Route: 048

REACTIONS (3)
  - DEPRESSED LEVEL OF CONSCIOUSNESS [None]
  - DRUG INTERACTION [None]
  - OSTEOPOROSIS [None]
